FAERS Safety Report 16825863 (Version 1)
Quarter: 2019Q3

REPORT INFORMATION
  Report Type: Spontaneous
  Country: FR (occurrence: FR)
  Receive Date: 20190919
  Receipt Date: 20190919
  Transmission Date: 20191005
  Serious: Yes (Other)
  Sender: FDA-Public Use
  Company Number: FR-SA-2019SA255988

PATIENT
  Age: 50 Year
  Sex: Female
  Weight: 58 kg

DRUGS (1)
  1. NASACORT [Suspect]
     Active Substance: TRIAMCINOLONE ACETONIDE
     Indication: RHINITIS ALLERGIC
     Dosage: 1 DF, QD
     Route: 045
     Dates: start: 201908

REACTIONS (5)
  - Oropharyngeal swelling [Recovered/Resolved]
  - Hot flush [Recovered/Resolved]
  - Intracranial pressure increased [Recovered/Resolved]
  - Ear swelling [Recovered/Resolved]
  - Dyspnoea [Recovered/Resolved]

NARRATIVE: CASE EVENT DATE: 20190811
